FAERS Safety Report 18382876 (Version 2)
Quarter: 2020Q4

REPORT INFORMATION
  Report Type: Spontaneous
  Country: US (occurrence: US)
  Receive Date: 20201014
  Receipt Date: 20201103
  Transmission Date: 20210114
  Serious: No
  Sender: FDA-Public Use
  Company Number: US-BRISTOL-MYERS SQUIBB COMPANY-BMS-2020-085197

PATIENT
  Sex: Female

DRUGS (2)
  1. SPRYCEL [Suspect]
     Active Substance: DASATINIB
     Indication: MYELOID LEUKAEMIA
     Dosage: 80 MILLIGRAM, QD
     Route: 048
     Dates: start: 20180217
  2. SPRYCEL [Suspect]
     Active Substance: DASATINIB
     Dosage: 80 MILLIGRAM, QD
     Route: 048
     Dates: start: 202006

REACTIONS (12)
  - Nausea [Unknown]
  - Allergy to animal [Unknown]
  - Mycotic allergy [Unknown]
  - Diarrhoea [Unknown]
  - Fatigue [Unknown]
  - Seasonal allergy [Unknown]
  - Respiratory tract congestion [Unknown]
  - Abdominal discomfort [Unknown]
  - Oral pain [Unknown]
  - Constipation [Unknown]
  - Rash [Unknown]
  - Myalgia [Unknown]
